FAERS Safety Report 9130850 (Version 1)
Quarter: 2013Q1

REPORT INFORMATION
  Report Type: Spontaneous
  Country: FR (occurrence: FR)
  Receive Date: 20130301
  Receipt Date: 20130301
  Transmission Date: 20140127
  Serious: Yes (Hospitalization)
  Sender: FDA-Public Use
  Company Number: FR-PFIZER INC-2013067284

PATIENT
  Age: 23 Year
  Sex: Female

DRUGS (1)
  1. STEDIRIL [Suspect]
     Indication: CONTRACEPTION
     Dosage: NORGESTREL 500UG/ETHINYL ESTRADIOL 50UG
     Route: 048
     Dates: start: 201212, end: 201301

REACTIONS (1)
  - Thrombocytopenia [Recovering/Resolving]
